FAERS Safety Report 4325409-6 (Version None)
Quarter: 2004Q1

REPORT INFORMATION
  Report Type: 
  Country: None (occurrence: None)
  Receive Date: 20040324
  Receipt Date: 20040312
  Transmission Date: 20041129
  Serious: Yes (Other)
  Sender: FDA-Public Use
  Company Number: K200400371

PATIENT
  Age: 63 Year
  Sex: Female
  Weight: 65.8 kg

DRUGS (4)
  1. LEVOXYL [Suspect]
     Indication: HYPOTHYROIDISM
     Dosage: 25 MCG, SINGLE,ORAL
     Route: 048
     Dates: start: 20040312, end: 20040312
  2. CLONIDINE [Concomitant]
  3. ASPIRIN ^BAYER^ (ACETYLSALICYLIC) [Concomitant]
  4. LABETALOL HCL [Concomitant]

REACTIONS (4)
  - FATIGUE [None]
  - FEELING ABNORMAL [None]
  - OROPHARYNGEAL SWELLING [None]
  - URTICARIA [None]
